FAERS Safety Report 14086085 (Version 1)
Quarter: 2017Q4

REPORT INFORMATION
  Report Type: Spontaneous
  Country: FR (occurrence: FR)
  Receive Date: 20171013
  Receipt Date: 20171013
  Transmission Date: 20180321
  Serious: Yes (Hospitalization, Other)
  Sender: FDA-Public Use
  Company Number: FR-TELIGENT, INC-IGIL20170446

PATIENT
  Age: 83 Year
  Sex: Female

DRUGS (4)
  1. CEFUROXIME SODIUM. [Suspect]
     Active Substance: CEFUROXIME SODIUM
     Indication: ERYSIPELAS
     Dosage: UNKNOWN
     Route: 042
     Dates: start: 20170823, end: 2017
  2. DIPROSONE [Concomitant]
     Active Substance: BETAMETHASONE DIPROPIONATE
     Indication: PRODUCT USED FOR UNKNOWN INDICATION
     Dosage: UNKNOWN
     Route: 065
     Dates: start: 201708
  3. VALSARTAN. [Concomitant]
     Active Substance: VALSARTAN
     Indication: PRODUCT USED FOR UNKNOWN INDICATION
     Dosage: UNKNOWN
     Route: 065
  4. LOVENOX [Suspect]
     Active Substance: ENOXAPARIN SODIUM
     Indication: DEEP VEIN THROMBOSIS
     Dosage: 8000 IU
     Route: 042
     Dates: start: 20170818, end: 20170908

REACTIONS (8)
  - Eosinophilia [Recovering/Resolving]
  - Erythema [Recovering/Resolving]
  - Rash erythematous [Recovering/Resolving]
  - Toxic skin eruption [Recovered/Resolved]
  - Exfoliative rash [Recovering/Resolving]
  - Eczema [Recovering/Resolving]
  - Rash pruritic [Recovering/Resolving]
  - Stasis dermatitis [Recovering/Resolving]

NARRATIVE: CASE EVENT DATE: 2017
